FAERS Safety Report 9100349 (Version 1)
Quarter: 2013Q1

REPORT INFORMATION
  Report Type: Report from Study
  Country: JP (occurrence: JP)
  Receive Date: 20130215
  Receipt Date: 20130215
  Transmission Date: 20140127
  Serious: Yes (Hospitalization)
  Sender: FDA-Public Use
  Company Number: JP-ASTELLAS-2013JP001426

PATIENT
  Age: 48 Year
  Sex: Female

DRUGS (6)
  1. TACROLIMUS CAPSULES [Suspect]
     Indication: LUPUS NEPHRITIS
     Dosage: 3 MG, UNKNOWN/D
     Route: 048
     Dates: start: 20080902, end: 201204
  2. ANTIBIOTICS [Suspect]
     Dosage: UNK
     Route: 065
  3. PREDNISOLONE [Concomitant]
     Indication: LUPUS NEPHRITIS
     Dosage: 12.5 MG, UNKNOWN/D
     Route: 048
  4. DORNER [Concomitant]
     Route: 048
  5. ADALAT [Concomitant]
     Dosage: UNK
     Route: 048
  6. DIOVAN [Concomitant]
     Dosage: UNK
     Route: 048

REACTIONS (1)
  - Toxic skin eruption [Recovered/Resolved]
